FAERS Safety Report 8238170-X (Version None)
Quarter: 2012Q1

REPORT INFORMATION
  Report Type: 
  Country: None (occurrence: None)
  Receive Date: 20120327
  Receipt Date: 20120317
  Transmission Date: 20120608
  Serious: Yes (Other)
  Sender: FDA-Public Use
  Company Number: DK-ROCHE-1052860

PATIENT

DRUGS (3)
  1. RANIBIZUMAB [Suspect]
     Indication: AGE-RELATED MACULAR DEGENERATION
     Route: 050
  2. DEXTROSE [Suspect]
     Indication: AGE-RELATED MACULAR DEGENERATION
  3. VERTEPORFIN [Concomitant]

REACTIONS (1)
  - PERIORBITAL HAEMATOMA [None]
